FAERS Safety Report 20493178 (Version 1)
Quarter: 2022Q1

REPORT INFORMATION
  Report Type: Spontaneous
  Country: CZ (occurrence: CZ)
  Receive Date: 20220220
  Receipt Date: 20220220
  Transmission Date: 20220423
  Serious: Yes (Life-Threatening, Hospitalization)
  Sender: FDA-Public Use
  Company Number: None

PATIENT
  Age: 71 Year
  Sex: Male

DRUGS (8)
  1. LEUCOVORIN [Suspect]
     Active Substance: LEUCOVORIN
     Indication: Colon cancer
     Dates: end: 20211119
  2. AVASTIN [Suspect]
     Active Substance: BEVACIZUMAB
     Indication: Colon cancer
     Dosage: 450 MG
     Route: 042
     Dates: start: 20210618, end: 20211119
  3. FLUOROURACIL [Suspect]
     Active Substance: FLUOROURACIL
     Indication: Colon cancer
     Dates: end: 20211119
  4. MAGNESIUM CARBONATE\MAGNESIUM OXIDE [Concomitant]
     Active Substance: MAGNESIUM CARBONATE\MAGNESIUM OXIDE
  5. OLTAR [Concomitant]
     Indication: Type 2 diabetes mellitus
     Dosage: 6 MG
  6. Betamed [Concomitant]
     Dosage: 10 MG
  7. ASPIRIN\GLYCINE [Concomitant]
     Active Substance: ASPIRIN\GLYCINE
     Dosage: 100 MG
  8. Purinol [Concomitant]
     Dosage: 300 MG

REACTIONS (1)
  - Acute kidney injury [Recovered/Resolved]

NARRATIVE: CASE EVENT DATE: 20211229
